FAERS Safety Report 22380874 (Version 2)
Quarter: 2024Q1

REPORT INFORMATION
  Report Type: Spontaneous
  Country: US (occurrence: US)
  Receive Date: 20230530
  Receipt Date: 20240129
  Transmission Date: 20240410
  Serious: Yes (Other)
  Sender: FDA-Public Use
  Company Number: US-NOVOPROD-1068756

PATIENT
  Sex: Female

DRUGS (1)
  1. RYBELSUS [Suspect]
     Active Substance: SEMAGLUTIDE
     Indication: Product used for unknown indication
     Dosage: 7 MG
     Route: 048
     Dates: start: 20230407, end: 20230512

REACTIONS (4)
  - Loss of consciousness [Recovered/Resolved]
  - Cardiac disorder [Recovered/Resolved]
  - Vision blurred [Recovered/Resolved]
  - Blood glucose increased [Recovered/Resolved]
